FAERS Safety Report 5624227-6 (Version None)
Quarter: 2008Q1

REPORT INFORMATION
  Report Type: 
  Country: None (occurrence: None)
  Receive Date: 20080213
  Receipt Date: 20080208
  Transmission Date: 20080703
  Serious: Yes (Hospitalization)
  Sender: FDA-Public Use
  Company Number: PHHO2008BR01838

PATIENT
  Age: 79 Year
  Sex: Female
  Weight: 70 kg

DRUGS (10)
  1. NATEGLINIDE [Suspect]
     Indication: GLUCOSE TOLERANCE IMPAIRED
     Dosage: 60 MG, UNK
     Route: 048
     Dates: start: 20021128
  2. NATEGLINIDE [Suspect]
     Dosage: LEVEL 2
     Route: 048
     Dates: end: 20080106
  3. PLACEBO [Suspect]
     Dosage: LEVEL 1
     Route: 048
     Dates: start: 20021128
  4. PLACEBO [Suspect]
     Dosage: LEVEL 2
     Route: 048
     Dates: end: 20080106
  5. CARVEDILOL [Concomitant]
     Indication: ARRHYTHMIA
  6. AMLODIPINE [Suspect]
     Indication: HYPERTENSION
  7. CAPTOPRIL [Suspect]
     Indication: HYPERTENSION
  8. ACETYLSALICYLATE [Suspect]
  9. SIMVASTATIN [Suspect]
     Indication: DYSLIPIDAEMIA
  10. HYDROCHLOROTHIAZIDE [Suspect]

REACTIONS (8)
  - ABDOMINAL PAIN [None]
  - ARRHYTHMIA [None]
  - ATRIOVENTRICULAR BLOCK [None]
  - DISEASE PROGRESSION [None]
  - DYSPNOEA [None]
  - ELECTROCARDIOGRAM QT PROLONGED [None]
  - VENTRICULAR FIBRILLATION [None]
  - VENTRICULAR TACHYCARDIA [None]
